FAERS Safety Report 10251607 (Version 2)
Quarter: 2014Q2

REPORT INFORMATION
  Report Type: Spontaneous
  Country: US (occurrence: US)
  Receive Date: 20140623
  Receipt Date: 20140623
  Transmission Date: 20141212
  Serious: Yes (Other)
  Sender: FDA-Public Use
  Company Number: US-AMGEN-USASP2014025836

PATIENT
  Sex: 0

DRUGS (4)
  1. XGEVA [Suspect]
     Indication: PRODUCT USED FOR UNKNOWN INDICATION
     Dosage: UNK
     Route: 065
  2. FEMARA [Concomitant]
     Dosage: UNK
  3. XELODA [Concomitant]
     Dosage: UNK
  4. LIDOCAINE [Concomitant]

REACTIONS (2)
  - Metastases to liver [Unknown]
  - Metastases to bone [Unknown]
